FAERS Safety Report 14294690 (Version 5)
Quarter: 2018Q2

REPORT INFORMATION
  Report Type: Spontaneous
  Country: IE (occurrence: IE)
  Receive Date: 20171218
  Receipt Date: 20180411
  Transmission Date: 20180711
  Serious: Yes (Death, Hospitalization, Other)
  Sender: FDA-Public Use
  Company Number: IE-BIOGEN-2017BI00498296

PATIENT
  Age: 57 Year
  Sex: Female

DRUGS (3)
  1. TYSABRI [Suspect]
     Active Substance: NATALIZUMAB
     Route: 042
     Dates: start: 201711, end: 20171116
  2. TYSABRI [Suspect]
     Active Substance: NATALIZUMAB
     Indication: PRODUCT USED FOR UNKNOWN INDICATION
     Route: 065
  3. SOLPADEINE (ACETAMINOPHEN\CAFFEINE\CODEINE PHOSPHATE) [Concomitant]
     Active Substance: ACETAMINOPHEN\CAFFEINE\CODEINE PHOSPHATE
     Indication: PRODUCT USED FOR UNKNOWN INDICATION
     Route: 065

REACTIONS (8)
  - Cholangiocarcinoma [Fatal]
  - Cholecystitis [Unknown]
  - Prescribed underdose [Recovered/Resolved]
  - Lung neoplasm malignant [Fatal]
  - Metastatic neoplasm [Unknown]
  - Body temperature increased [Unknown]
  - Liver abscess [Unknown]
  - Gallbladder perforation [Unknown]

NARRATIVE: CASE EVENT DATE: 20170726
